FAERS Safety Report 17475370 (Version 1)
Quarter: 2020Q1

REPORT INFORMATION
  Report Type: Report from Study
  Country: BR (occurrence: BR)
  Receive Date: 20200228
  Receipt Date: 20200228
  Transmission Date: 20200409
  Serious: Yes (Hospitalization)
  Sender: FDA-Public Use
  Company Number: BR-JNJFOC-20180728445

PATIENT
  Age: 57 Year
  Sex: Female
  Weight: 67 kg

DRUGS (4)
  1. METFORMIN [Concomitant]
     Active Substance: METFORMIN HYDROCHLORIDE
     Indication: DIABETES MELLITUS
     Route: 065
  2. GABAPENTIN. [Concomitant]
     Active Substance: GABAPENTIN
     Route: 065
  3. STELARA [Suspect]
     Active Substance: USTEKINUMAB
     Indication: PSORIATIC ARTHROPATHY
     Route: 058
     Dates: start: 20170731
  4. GLYCINE. [Concomitant]
     Active Substance: GLYCINE
     Indication: DIABETES MELLITUS
     Route: 065

REACTIONS (10)
  - Mass [Unknown]
  - Pain [Not Recovered/Not Resolved]
  - Hypokinesia [Unknown]
  - Cerebrovascular accident [Unknown]
  - Joint stiffness [Unknown]
  - Memory impairment [Not Recovered/Not Resolved]
  - Arthralgia [Unknown]
  - Fatigue [Unknown]
  - Depression [Not Recovered/Not Resolved]
  - Rheumatoid factor [Not Recovered/Not Resolved]

NARRATIVE: CASE EVENT DATE: 20190613
